FAERS Safety Report 9586104 (Version 1)
Quarter: 2013Q4

REPORT INFORMATION
  Report Type: Spontaneous
  Country: GB (occurrence: None)
  Receive Date: 20131001
  Receipt Date: 20131001
  Transmission Date: 20140711
  Serious: Yes (Other)
  Sender: FDA-Public Use
  Company Number: SYM-2013-10998

PATIENT
  Age: 74 Year
  Sex: Male

DRUGS (4)
  1. METRONIDAZOLE [Suspect]
     Indication: TOOTH INFECTION
     Route: 048
     Dates: start: 20130905, end: 20130906
  2. CODEINE PHOSPHATE [Concomitant]
  3. FLUTICASONE PROPIONATE [Concomitant]
  4. LORATADINE [Concomitant]

REACTIONS (1)
  - Dyspnoea [None]
